FAERS Safety Report 9822752 (Version 1)
Quarter: 2014Q1

REPORT INFORMATION
  Report Type: Spontaneous
  Country: GB (occurrence: GB)
  Receive Date: 20140116
  Receipt Date: 20140116
  Transmission Date: 20141002
  Serious: Yes (Life-Threatening, Hospitalization)
  Sender: FDA-Public Use
  Company Number: GB-TEVA-455980ISR

PATIENT
  Age: 92 Year
  Sex: Female
  Weight: 38.6 kg

DRUGS (8)
  1. ALENDRONIC ACID [Suspect]
     Indication: OSTEOPOROSIS PROPHYLAXIS
     Route: 048
     Dates: start: 20131231, end: 20140104
  2. ASPIRIN [Suspect]
     Indication: ATRIAL FIBRILLATION
     Dosage: 75 MILLIGRAM DAILY;
     Route: 048
     Dates: start: 20131210, end: 20140104
  3. CLARITHROMYCIN [Concomitant]
  4. ENOXAPARIN [Concomitant]
  5. NUTRITIONAL SUPPLEMENT [Concomitant]
  6. AMLODIPINE [Concomitant]
  7. PARACETAMOL [Concomitant]
  8. CALCICHEW D3 [Concomitant]

REACTIONS (4)
  - Gastrointestinal haemorrhage [Recovering/Resolving]
  - Melaena [Recovering/Resolving]
  - Hypotension [Recovering/Resolving]
  - Haematemesis [Recovering/Resolving]
